FAERS Safety Report 4974431-5 (Version None)
Quarter: 2006Q2

REPORT INFORMATION
  Report Type: 
  Country: None (occurrence: None)
  Receive Date: 20060410
  Receipt Date: 20060328
  Transmission Date: 20061013
  Serious: Yes (Hospitalization, Disabling, Other)
  Sender: FDA-Public Use
  Company Number: THQ2006A00275

PATIENT
  Age: 56 Year
  Sex: Male

DRUGS (12)
  1. LANSOPRAZOLE [Suspect]
     Indication: GASTRITIS EROSIVE
     Dosage: (30 MG)
     Dates: start: 20050324, end: 20060101
  2. LANSOPRAZOLE [Suspect]
     Indication: OESOPHAGITIS
     Dosage: (30 MG)
     Dates: start: 20050324, end: 20060101
  3. ASPIRIN [Suspect]
     Indication: ANTIPLATELET THERAPY
     Dates: start: 20030101, end: 20050324
  4. ASPIRIN [Suspect]
     Indication: SURGERY
     Dates: start: 20030101, end: 20050324
  5. ATENOLOL [Concomitant]
  6. BISOPROLOL [Concomitant]
  7. CITALOPRAM [Concomitant]
  8. CLOPIDOGREL [Concomitant]
  9. SIMVASTATIN [Suspect]
     Indication: BLOOD CHOLESTEROL INCREASED
     Dosage: (20 MG)
     Route: 048
     Dates: end: 20060209
  10. SIMVASTATIN [Suspect]
     Indication: MYOCARDIAL INFARCTION
     Dosage: (20 MG)
     Route: 048
     Dates: end: 20060209
  11. SIMVASTATIN [Suspect]
     Indication: BLOOD CHOLESTEROL INCREASED
     Dosage: (20 MG)
     Route: 048
     Dates: start: 20030701
  12. SIMVASTATIN [Suspect]
     Indication: MYOCARDIAL INFARCTION
     Dosage: (20 MG)
     Route: 048
     Dates: start: 20030701

REACTIONS (15)
  - BALANCE DISORDER [None]
  - CONDITION AGGRAVATED [None]
  - COORDINATION ABNORMAL [None]
  - DIZZINESS [None]
  - DYSPHAGIA [None]
  - FALL [None]
  - FATIGUE [None]
  - GAIT DISTURBANCE [None]
  - GASTRITIS EROSIVE [None]
  - LOSS OF PROPRIOCEPTION [None]
  - MUSCLE FATIGUE [None]
  - MUSCULAR WEAKNESS [None]
  - MYALGIA [None]
  - OESOPHAGITIS [None]
  - PRE-EXISTING DISEASE [None]
